FAERS Safety Report 7608508-2 (Version None)
Quarter: 2011Q3

REPORT INFORMATION
  Report Type: 
  Country: None (occurrence: None)
  Receive Date: 20110714
  Receipt Date: 20110707
  Transmission Date: 20111222
  Serious: Yes (Hospitalization, Other)
  Sender: FDA-Public Use
  Company Number: US-BRISTOL-MYERS SQUIBB COMPANY-15697691

PATIENT
  Age: 61 Year
  Sex: Male

DRUGS (13)
  1. BUDESONIDE [Concomitant]
     Route: 048
     Dates: start: 20110512
  2. DRONABINOL [Concomitant]
     Route: 048
     Dates: start: 20110614
  3. MAGNESIUM SULFATE [Concomitant]
     Route: 042
     Dates: start: 20110614
  4. CALCITRIOL [Concomitant]
     Route: 048
     Dates: start: 20110221
  5. INSULIN LISPRO [Concomitant]
     Route: 058
     Dates: start: 20110516
  6. METOPROLOL [Concomitant]
     Route: 048
     Dates: start: 20110427
  7. IMODIUM [Concomitant]
     Route: 048
     Dates: start: 20110512
  8. IPILIMUMAB [Suspect]
     Indication: MALIGNANT MELANOMA
     Dosage: 3MG/KG - STRENGTH. LAST DOSE: 18AP2011
     Route: 042
     Dates: start: 20110307, end: 20110425
  9. ESOMEPRAZOLE MAGNESIUM [Concomitant]
     Route: 048
     Dates: start: 20110615
  10. POTASSIUM CHLORIDE [Concomitant]
     Route: 042
     Dates: start: 20110614
  11. PREDNISONE [Concomitant]
     Route: 048
     Dates: start: 20110615
  12. FLOMAX [Concomitant]
     Route: 048
     Dates: start: 20110501
  13. SIMVASTATIN [Concomitant]
     Dosage: QHS
     Route: 048
     Dates: start: 20110221

REACTIONS (6)
  - PYREXIA [None]
  - HAEMORRHOIDS [None]
  - DIARRHOEA [None]
  - PNEUMOCYSTIS JIROVECI PNEUMONIA [None]
  - HYPOXIA [None]
  - ANAEMIA [None]
